FAERS Safety Report 7771848-0 (Version None)
Quarter: 2011Q3

REPORT INFORMATION
  Report Type: 
  Country: None (occurrence: None)
  Receive Date: 20110922
  Receipt Date: 20110209
  Transmission Date: 20111222
  Serious: No
  Sender: FDA-Public Use
  Company Number: US-ASTRAZENECA-2007UW05876

PATIENT
  Age: 46 Year
  Sex: Female
  Weight: 83.9 kg

DRUGS (6)
  1. CYMBALTA [Concomitant]
  2. ABILIFY [Concomitant]
  3. SYMBYAX [Concomitant]
  4. SEROQUEL [Suspect]
     Indication: SLEEP DISORDER
     Dosage: 100 TO 200 MG
     Route: 048
     Dates: start: 20050217, end: 20070227
  5. HYDROXYCUT [Concomitant]
     Indication: WEIGHT CONTROL
     Dates: start: 20090101
  6. ZYPREXA [Concomitant]

REACTIONS (5)
  - DIABETES MELLITUS [None]
  - HYPERTENSION [None]
  - THYROID DISORDER [None]
  - BLOOD TRIGLYCERIDES INCREASED [None]
  - TYPE 2 DIABETES MELLITUS [None]
